FAERS Safety Report 8681456 (Version 2)
Quarter: 2013Q4

REPORT INFORMATION
  Report Type: Spontaneous
  Country: US (occurrence: US)
  Receive Date: 20120725
  Receipt Date: 20131106
  Transmission Date: 20140711
  Serious: Yes (Other)
  Sender: FDA-Public Use
  Company Number: US-009507513-1207USA007793

PATIENT
  Age: 44 Year
  Sex: Male

DRUGS (1)
  1. VICTRELIS [Suspect]
     Indication: CHRONIC HEPATITIS C
     Dosage: 800 MICROGRAM, TID
     Route: 048
     Dates: start: 20120611, end: 20120717

REACTIONS (1)
  - Blister infected [Unknown]
